FAERS Safety Report 13093463 (Version 1)
Quarter: 2017Q1

REPORT INFORMATION
  Report Type: Spontaneous
  Country: ES (occurrence: ES)
  Receive Date: 20170106
  Receipt Date: 20170106
  Transmission Date: 20170428
  Serious: Yes (Other)
  Sender: FDA-Public Use
  Company Number: ES-TEVA-724974ISR

PATIENT
  Age: 55 Year
  Sex: Female
  Weight: 84 kg

DRUGS (1)
  1. PACLITAXEL TEVA 6MG/ML CONCENTRADO PARA SOLUCION PARA PERFUSION [Suspect]
     Active Substance: PACLITAXEL
     Indication: OVARIAN CANCER
     Route: 065
     Dates: start: 20161125

REACTIONS (4)
  - Dizziness [Recovered/Resolved]
  - Back pain [Recovered/Resolved]
  - Nausea [Recovered/Resolved]
  - Choking sensation [Recovered/Resolved]

NARRATIVE: CASE EVENT DATE: 20161125
